FAERS Safety Report 4918994-4 (Version None)
Quarter: 2006Q1

REPORT INFORMATION
  Report Type: 
  Country: None (occurrence: None)
  Receive Date: 20060221
  Receipt Date: 20060221
  Transmission Date: 20060701
  Serious: Yes (Death)
  Sender: FDA-Public Use
  Company Number: None

PATIENT
  Sex: Male

DRUGS (1)
  1. MAGNESIUM SULFATE [Suspect]
     Indication: DIALYSIS
     Dosage: IV DRIP
     Route: 041
     Dates: start: 20060208

REACTIONS (7)
  - CARDIAC ARREST [None]
  - DRUG DISPENSING ERROR [None]
  - FEELING HOT [None]
  - LOSS OF CONSCIOUSNESS [None]
  - MEDICATION ERROR [None]
  - THIRST [None]
  - WRONG DRUG ADMINISTERED [None]
